FAERS Safety Report 6411617-7 (Version None)
Quarter: 2009Q4

REPORT INFORMATION
  Report Type: 
  Country: None (occurrence: None)
  Receive Date: 20091023
  Receipt Date: 20091013
  Transmission Date: 20100525
  Serious: Yes (Other)
  Sender: FDA-Public Use
  Company Number: CA-JNJFOC-20091004941

PATIENT
  Age: 45 Year
  Sex: Male

DRUGS (6)
  1. INFLIXIMAB [Suspect]
     Dosage: 3RD INFUSION, WEEK 6
     Route: 042
  2. INFLIXIMAB [Suspect]
     Dosage: 3RD INFUSION, WEEK 6
     Route: 042
  3. INFLIXIMAB [Suspect]
     Dosage: 2ND INFUSION, WEEK 2
     Route: 042
  4. INFLIXIMAB [Suspect]
     Indication: CROHN'S DISEASE
     Dosage: BASELINE, WEEK 0
     Route: 042
  5. PREDNISONE [Concomitant]
     Dosage: TAPERED DOWN TO 40 MG AT A RATE OF 5 MG WEEKLY
  6. PREDNISONE [Concomitant]
     Indication: CROHN'S DISEASE

REACTIONS (1)
  - NOCARDIOSIS [None]
